FAERS Safety Report 4881786-9 (Version None)
Quarter: 2006Q1

REPORT INFORMATION
  Report Type: 
  Country: None (occurrence: None)
  Receive Date: 20060112
  Receipt Date: 20051230
  Transmission Date: 20060701
  Serious: Yes (Other)
  Sender: FDA-Public Use
  Company Number: 2006002023

PATIENT
  Age: 45 Year
  Sex: Male
  Weight: 108.8633 kg

DRUGS (2)
  1. CAVERJECT [Suspect]
     Indication: ERECTILE DYSFUNCTION
     Dosage: (20 MG)
     Dates: start: 19990101
  2. VIAGRA [Suspect]
     Indication: ERECTILE DYSFUNCTION
     Dosage: (100 MG, AS NECESSARY), ORAL
     Route: 048
     Dates: start: 19990101

REACTIONS (8)
  - DRUG EFFECT DECREASED [None]
  - HYPOAESTHESIA [None]
  - IMPRISONMENT [None]
  - INTERVERTEBRAL DISC PROTRUSION [None]
  - NERVE INJURY [None]
  - POST PROCEDURAL COMPLICATION [None]
  - SENSORY LOSS [None]
  - WHEELCHAIR USER [None]
